FAERS Safety Report 12803948 (Version 3)
Quarter: 2016Q4

REPORT INFORMATION
  Report Type: Spontaneous
  Country: US (occurrence: US)
  Receive Date: 20161003
  Receipt Date: 20161117
  Transmission Date: 20170207
  Serious: Yes (Death, Other)
  Sender: FDA-Public Use
  Company Number: US-PFIZER INC-2016460536

PATIENT
  Age: 79 Year
  Sex: Male
  Weight: 77.11 kg

DRUGS (2)
  1. DIGOXIN. [Concomitant]
     Active Substance: DIGOXIN
     Indication: CARDIAC DISORDER
     Dosage: UNK
     Dates: start: 201602
  2. REVATIO [Suspect]
     Active Substance: SILDENAFIL CITRATE
     Indication: LUNG DISORDER
     Dosage: 20 MG, 4X/DAY (4 TABLETS PER DAY) FOR THE PAST FIVE YEARS

REACTIONS (6)
  - Renal failure [Unknown]
  - Hepatic failure [Unknown]
  - Product use issue [Unknown]
  - Death [Fatal]
  - Blood disorder [Not Recovered/Not Resolved]
  - Haemorrhage [Not Recovered/Not Resolved]

NARRATIVE: CASE EVENT DATE: 201602
